FAERS Safety Report 6314045-8 (Version None)
Quarter: 2009Q3

REPORT INFORMATION
  Report Type: 
  Country: None (occurrence: None)
  Receive Date: 20090818
  Receipt Date: 20090806
  Transmission Date: 20100115
  Serious: Yes (Hospitalization)
  Sender: FDA-Public Use
  Company Number: AU-ELI_LILLY_AND_COMPANY-AU200908001391

PATIENT
  Sex: Male
  Weight: 30 kg

DRUGS (2)
  1. STRATTERA [Suspect]
     Dosage: UNK, UNKNOWN
     Route: 065
  2. RISPERDAL [Concomitant]
     Indication: AUTISM
     Dosage: 1 MG, DAILY (1/D)
     Route: 048
     Dates: start: 20090330, end: 20090403

REACTIONS (3)
  - CONVULSION [None]
  - DYSTONIA [None]
  - OFF LABEL USE [None]
